FAERS Safety Report 6731200-3 (Version None)
Quarter: 2010Q2

REPORT INFORMATION
  Report Type: 
  Country: None (occurrence: None)
  Receive Date: 20100518
  Receipt Date: 20100505
  Transmission Date: 20101027
  Serious: Yes (Other)
  Sender: FDA-Public Use
  Company Number: US-ELI_LILLY_AND_COMPANY-US201004002752

PATIENT
  Sex: Female

DRUGS (22)
  1. FORTEO [Suspect]
     Indication: OSTEOPOROSIS
     Dosage: 20 UG, DAILY (1/D)
     Dates: start: 20090916
  2. EVISTA [Suspect]
     Dosage: 60 MG, DAILY (1/D)
  3. SYNTHROID [Concomitant]
  4. ANTIHYPERTENSIVES [Concomitant]
  5. CLONIDINE [Concomitant]
  6. NASONEX [Concomitant]
  7. ALBUTEROL [Concomitant]
  8. XALATAN [Concomitant]
  9. TYLENOL (CAPLET) [Concomitant]
     Dosage: UNK, 2/D
  10. ASPERCREME [Concomitant]
  11. DIOVAN [Concomitant]
     Dosage: 160 UG, UNK
  12. LEVOTHYROXINE SODIUM [Concomitant]
     Indication: THYROID DISORDER
     Dosage: 88 UG, UNK
  13. OMEPRAZOLE [Concomitant]
     Dosage: 20 MG, 2/D
  14. CALCIUM WITH VITAMIN D /00944201/ [Concomitant]
  15. VITAMINS WITH MINERALS [Concomitant]
  16. LOVAZA [Concomitant]
     Dosage: 1000 UG, UNK
  17. GARLIC [Concomitant]
     Indication: ARTHRITIS
  18. VITAMIN C [Concomitant]
  19. VITAMIN E [Concomitant]
     Dosage: 400 IU, UNK
  20. VITAMIN B COMPLEX CAP [Concomitant]
  21. ENZYMES [Concomitant]
     Dosage: 30 MG, UNK
  22. FLOVENT HFA [Concomitant]
     Indication: ASTHMA
     Dosage: 110 UG, UNK

REACTIONS (10)
  - ASTHENIA [None]
  - COLD SWEAT [None]
  - CONTUSION [None]
  - DIZZINESS [None]
  - FATIGUE [None]
  - FEELING HOT [None]
  - HYPERHIDROSIS [None]
  - NAUSEA [None]
  - SYNCOPE [None]
  - VERTEBROPLASTY [None]
